FAERS Safety Report 9652106 (Version 2)
Quarter: 2013Q4

REPORT INFORMATION
  Report Type: Spontaneous
  Country: FR (occurrence: None)
  Receive Date: 20131025
  Receipt Date: 20131217
  Transmission Date: 20140711
  Serious: Yes (Hospitalization)
  Sender: FDA-Public Use
  Company Number: 2013AP009191

PATIENT
  Age: 15 Year
  Sex: Male

DRUGS (3)
  1. FERRIPROX [Suspect]
     Indication: THALASSAEMIA BETA
     Route: 048
     Dates: start: 200705
  2. DESFERAL [Concomitant]
  3. EXJADE [Concomitant]

REACTIONS (6)
  - Treatment noncompliance [None]
  - Asthenia [None]
  - Chills [None]
  - Tachycardia [None]
  - Bone marrow failure [None]
  - Agranulocytosis [None]
